FAERS Safety Report 16235576 (Version 2)
Quarter: 2020Q2

REPORT INFORMATION
  Report Type: Spontaneous
  Country: US (occurrence: US)
  Receive Date: 20190424
  Receipt Date: 20200620
  Transmission Date: 20200713
  Serious: Yes (Life-Threatening, Hospitalization, Other)
  Sender: FDA-Public Use
  Company Number: US-SUN PHARMACEUTICAL INDUSTRIES LTD-2019R1-205971

PATIENT
  Age: 32 Year
  Sex: Female

DRUGS (1)
  1. TIZANIDINE. [Suspect]
     Active Substance: TIZANIDINE
     Indication: PRODUCT USED FOR UNKNOWN INDICATION
     Dosage: UNK, (TAKEN BETWEEN 20 AND 30 TABLETS, TOTALING 80-120 MG)
     Route: 065

REACTIONS (6)
  - Shock [Recovered/Resolved]
  - Drug abuse [Unknown]
  - Overdose [Unknown]
  - Bradycardia [Unknown]
  - Hypotension [Unknown]
  - Self-medication [Unknown]
